FAERS Safety Report 11114726 (Version 25)
Quarter: 2024Q1

REPORT INFORMATION
  Report Type: Spontaneous
  Country: GB (occurrence: GB)
  Receive Date: 20150515
  Receipt Date: 20240319
  Transmission Date: 20240409
  Serious: Yes (Life-Threatening, Hospitalization, Disabling, Congenital Anomaly, Other)
  Sender: FDA-Public Use
  Company Number: GB-MHRA-ADR 20548096

PATIENT
  Age: 1 Hour
  Sex: Female
  Weight: 2.2 kg

DRUGS (36)
  1. ISENTRESS [Suspect]
     Active Substance: RALTEGRAVIR POTASSIUM
     Indication: HIV infection
     Dosage: 400 MG, QD
     Route: 064
     Dates: start: 20081023, end: 20090221
  2. ISENTRESS [Suspect]
     Active Substance: RALTEGRAVIR POTASSIUM
     Dosage: BID
     Route: 064
  3. ISENTRESS [Suspect]
     Active Substance: RALTEGRAVIR POTASSIUM
     Dosage: UNK, BID
     Route: 064
  4. NORVIR [Suspect]
     Active Substance: RITONAVIR
     Indication: HIV infection
     Dosage: 200 MG, QD
     Route: 064
     Dates: start: 20060905, end: 20081022
  5. NORVIR [Suspect]
     Active Substance: RITONAVIR
     Dosage: 100 MG, QD
     Route: 064
     Dates: start: 20081023
  6. NORVIR [Suspect]
     Active Substance: RITONAVIR
     Dosage: 100 MG, QD
     Route: 064
     Dates: start: 20060905
  7. APTIVUS [Suspect]
     Active Substance: TIPRANAVIR
     Indication: HIV infection
     Dosage: 500 MILLIGRAM, QD
     Route: 064
     Dates: start: 20060905, end: 20081023
  8. APTIVUS [Suspect]
     Active Substance: TIPRANAVIR
     Dosage: 500 MG, BID
     Route: 064
     Dates: start: 20060905, end: 20081023
  9. INTELENCE [Suspect]
     Active Substance: ETRAVIRINE
     Indication: HIV infection
     Dosage: 1000 MILLIGRAM, QD
     Route: 064
     Dates: start: 20081023
  10. INTELENCE [Suspect]
     Active Substance: ETRAVIRINE
     Indication: Antiretroviral therapy
     Dosage: 500 MILLIGRAM
     Route: 064
     Dates: start: 20081023
  11. INTELENCE [Suspect]
     Active Substance: ETRAVIRINE
     Indication: HIV infection
     Dosage: 500 MG, BID
     Route: 064
     Dates: start: 20081023
  12. PREZISTA [Suspect]
     Active Substance: DARUNAVIR ETHANOLATE
     Indication: HIV infection
     Dosage: 1200 MILLIGRAM
     Route: 064
     Dates: start: 20081023
  13. PREZISTA [Suspect]
     Active Substance: DARUNAVIR ETHANOLATE
     Indication: HIV infection
     Dosage: 600 MG, BID
     Route: 064
     Dates: start: 20081023
  14. PREZISTA [Suspect]
     Active Substance: DARUNAVIR ETHANOLATE
     Indication: HIV infection
  15. TIPRANAVIR [Suspect]
     Active Substance: TIPRANAVIR
     Dosage: UNK
     Route: 064
     Dates: start: 20070605, end: 200810
  16. TRUVADA [Suspect]
     Active Substance: EMTRICITABINE\TENOFOVIR DISOPROXIL FUMARATE
     Indication: HIV infection
     Dosage: UNK UNK, U
     Route: 064
     Dates: start: 20070605, end: 20081023
  17. TRUVADA [Suspect]
     Active Substance: EMTRICITABINE\TENOFOVIR DISOPROXIL FUMARATE
     Indication: HIV infection
  18. TRUVADA [Suspect]
     Active Substance: EMTRICITABINE\TENOFOVIR DISOPROXIL FUMARATE
     Indication: HIV infection
  19. ETRAVIRINE [Suspect]
     Active Substance: ETRAVIRINE
     Indication: Product used for unknown indication
     Dosage: 1000 MILLIGRAM, DAILY
     Route: 064
     Dates: start: 20081023
  20. ETRAVIRINE [Suspect]
     Active Substance: ETRAVIRINE
     Dosage: 100 MG, QD
     Route: 064
     Dates: start: 20081023
  21. ZIDOVUDINE [Suspect]
     Active Substance: ZIDOVUDINE
     Indication: Product used for unknown indication
     Dosage: UNK
     Route: 064
  22. ZIDOVUDINE [Suspect]
     Active Substance: ZIDOVUDINE
     Dosage: UNK
     Route: 064
  23. ZIDOVUDINE [Suspect]
     Active Substance: ZIDOVUDINE
     Dosage: UNK UNK, U
     Route: 064
  24. ZIDOVUDINE [Suspect]
     Active Substance: ZIDOVUDINE
     Dosage: UNK, U
     Route: 064
  25. RALTEGRAVIR [Suspect]
     Active Substance: RALTEGRAVIR
     Indication: Product used for unknown indication
     Dosage: 400 MILLIGRAM, QD
     Route: 064
     Dates: start: 20081023, end: 20090221
  26. ENFUVIRTIDE [Concomitant]
     Active Substance: ENFUVIRTIDE
     Indication: Product used for unknown indication
     Dosage: UNKNOWN
     Route: 064
  27. ENFUVIRTIDE [Concomitant]
     Active Substance: ENFUVIRTIDE
     Indication: Product used for unknown indication
     Dosage: UNK
     Route: 064
  28. ZIDOVUDINE [Concomitant]
     Active Substance: ZIDOVUDINE
     Route: 064
  29. NITROUS OXIDE [Concomitant]
     Active Substance: NITROUS OXIDE
     Indication: Product used for unknown indication
     Dosage: UNK
     Route: 064
  30. NITROUS OXIDE [Concomitant]
     Active Substance: NITROUS OXIDE
     Indication: Product used for unknown indication
     Dosage: UNK
     Route: 064
  31. NOVORAPID [Concomitant]
     Active Substance: INSULIN ASPART
     Indication: Gestational diabetes
     Dosage: 200 MILLIGRAM, QD
     Route: 064
  32. NOVORAPID [Concomitant]
     Active Substance: INSULIN ASPART
     Dosage: 200 MG, BID
     Route: 064
  33. PREDNISOLONE [Concomitant]
     Active Substance: PREDNISOLONE
     Indication: Product used for unknown indication
     Dosage: 25 MG, QD
     Route: 064
  34. PREDNISOLONE [Concomitant]
     Active Substance: PREDNISOLONE
     Indication: Product used for unknown indication
  35. OXYGEN [Concomitant]
     Active Substance: OXYGEN
     Indication: Product used for unknown indication
     Dosage: UNK
     Route: 064
  36. OXYGEN [Concomitant]
     Active Substance: OXYGEN
     Indication: Product used for unknown indication
     Dosage: UNK
     Route: 064

REACTIONS (33)
  - Cloacal exstrophy [Recovered/Resolved with Sequelae]
  - Musculoskeletal deformity [Recovered/Resolved with Sequelae]
  - Gastrointestinal malformation [Unknown]
  - Tethered cord syndrome [Recovered/Resolved with Sequelae]
  - Blood iron decreased [Recovered/Resolved]
  - Congenital anomaly [Unknown]
  - Erythema [Recovered/Resolved]
  - Sepsis neonatal [Recovered/Resolved]
  - Fibrosis [Unknown]
  - Meconium stain [Recovered/Resolved with Sequelae]
  - Caudal regression syndrome [Recovered/Resolved with Sequelae]
  - Spina bifida [Unknown]
  - Exomphalos [Recovered/Resolved with Sequelae]
  - Anencephaly [Unknown]
  - Lipodystrophy acquired [Unknown]
  - Meningomyelocele [Recovered/Resolved with Sequelae]
  - Gastrointestinal disorder congenital [Unknown]
  - Bladder agenesis [Recovered/Resolved with Sequelae]
  - Neural tube defect [Unknown]
  - Bladder agenesis [Unknown]
  - Premature baby [Recovered/Resolved]
  - Genitalia external ambiguous [Recovered/Resolved with Sequelae]
  - Umbilical cord abnormality [Unknown]
  - Lipodystrophy acquired [Not Recovered/Not Resolved]
  - Congenital genital malformation [Recovered/Resolved with Sequelae]
  - Congenital musculoskeletal disorder [Recovered/Resolved]
  - Anal atresia [Recovered/Resolved with Sequelae]
  - Umbilical cord abnormality [Recovered/Resolved with Sequelae]
  - Congenital musculoskeletal disorder of spine [Recovered/Resolved with Sequelae]
  - Congenital ectopic bladder [Unknown]
  - Sepsis [Recovered/Resolved]
  - Musculoskeletal discomfort [Recovered/Resolved with Sequelae]
  - Foetal exposure during pregnancy [Recovered/Resolved]

NARRATIVE: CASE EVENT DATE: 20080614
